FAERS Safety Report 19768149 (Version 2)
Quarter: 2021Q3

REPORT INFORMATION
  Report Type: Report from Study
  Country: CN (occurrence: CN)
  Receive Date: 20210830
  Receipt Date: 20210915
  Transmission Date: 20211014
  Serious: Yes (Hospitalization)
  Sender: FDA-Public Use
  Company Number: CN-EXELIXIS-XL18421043581

PATIENT
  Age: 81 Year
  Sex: Male
  Weight: 73 kg

DRUGS (7)
  1. XL184 [Suspect]
     Active Substance: CABOZANTINIB
     Indication: HEPATOCELLULAR CARCINOMA
     Dosage: 40 MG, QD
     Route: 048
     Dates: start: 20210802, end: 20210820
  2. SILYBIN MEGLUMIN [Concomitant]
  3. LEUCOGEN [Concomitant]
     Active Substance: LEUCOGEN
  4. TENOFOVIR DISOPROXIL FUMERATE [Concomitant]
     Active Substance: TENOFOVIR DISOPROXIL FUMARATE
  5. LAMIVUDINE + TENOFOVIR [Concomitant]
  6. ATEZOLIZUMAB. [Suspect]
     Active Substance: ATEZOLIZUMAB
     Indication: HEPATOCELLULAR CARCINOMA
     Dosage: 1200 MG, Q3WEEKS
     Route: 042
     Dates: start: 20210802
  7. HUAI ER [Concomitant]

REACTIONS (3)
  - Diarrhoea [Recovered/Resolved]
  - Melaena [Recovered/Resolved]
  - Vomiting [Recovered/Resolved]

NARRATIVE: CASE EVENT DATE: 20210823
